FAERS Safety Report 16111730 (Version 1)
Quarter: 2019Q1

REPORT INFORMATION
  Report Type: Report from Study
  Country: US (occurrence: US)
  Receive Date: 20190325
  Receipt Date: 20190325
  Transmission Date: 20190418
  Serious: Yes (Hospitalization)
  Sender: FDA-Public Use
  Company Number: US-GILEAD-2019-0391608

PATIENT
  Age: 63 Year
  Sex: Female

DRUGS (3)
  1. TADALAFIL. [Concomitant]
     Active Substance: TADALAFIL
  2. AMBRISENTAN [Suspect]
     Active Substance: AMBRISENTAN
     Indication: PULMONARY HYPERTENSION
     Dosage: 10 MG
     Route: 065
     Dates: start: 20120316
  3. AMBRISENTAN [Suspect]
     Active Substance: AMBRISENTAN
     Indication: SCLERODERMA

REACTIONS (2)
  - Dyspnoea [Not Recovered/Not Resolved]
  - Intentional product use issue [Not Recovered/Not Resolved]
